FAERS Safety Report 12290923 (Version 1)
Quarter: 2016Q2

REPORT INFORMATION
  Report Type: Spontaneous
  Country: US (occurrence: US)
  Receive Date: 20160421
  Receipt Date: 20160421
  Transmission Date: 20160815
  Serious: Yes (Other)
  Sender: FDA-Public Use
  Company Number: US-JUBILANT CADISTA PHARMACEUTICALS-2016JUB00137

PATIENT
  Age: 60 Year
  Sex: Male
  Weight: 70.3 kg

DRUGS (1)
  1. METHYLPREDNISOLONE. [Suspect]
     Active Substance: METHYLPREDNISOLONE
     Indication: LARYNGITIS
     Dosage: 4 MG, UNK
     Route: 048
     Dates: start: 20160408, end: 20160408

REACTIONS (3)
  - Paranoia [Recovering/Resolving]
  - Depression [Recovering/Resolving]
  - Hallucination [Recovered/Resolved]

NARRATIVE: CASE EVENT DATE: 20160408
